FAERS Safety Report 6903084-1 (Version None)
Quarter: 2010Q3

REPORT INFORMATION
  Report Type: 
  Country: None (occurrence: None)
  Receive Date: 20100803
  Receipt Date: 20080616
  Transmission Date: 20110219
  Serious: No
  Sender: FDA-Public Use
  Company Number: US-PFIZER INC-2008050892

PATIENT
  Sex: Female
  Weight: 49.9 kg

DRUGS (9)
  1. LYRICA [Suspect]
     Indication: FIBROMYALGIA
     Dates: start: 20080613, end: 20080615
  2. ZOLOFT [Concomitant]
  3. WELLBUTRIN [Concomitant]
  4. TRAZODONE [Concomitant]
  5. LIPITOR [Concomitant]
  6. OXYCONTIN [Concomitant]
  7. OXYCODONE [Concomitant]
  8. SENOKOT [Concomitant]
  9. CALCIUM [Concomitant]

REACTIONS (1)
  - VISION BLURRED [None]
